FAERS Safety Report 19605364 (Version 1)
Quarter: 2021Q3

REPORT INFORMATION
  Report Type: Report from Study
  Country: CO (occurrence: CO)
  Receive Date: 20210723
  Receipt Date: 20210723
  Transmission Date: 20211014
  Serious: Yes (Other)
  Sender: FDA-Public Use
  Company Number: CO-ASTELLAS-2021US020790

PATIENT
  Age: 66 Year
  Sex: Male
  Weight: 60 kg

DRUGS (1)
  1. ENZALUTAMIDE [Suspect]
     Active Substance: ENZALUTAMIDE
     Indication: PROSTATE CANCER
     Route: 048
     Dates: start: 20200914

REACTIONS (10)
  - Respiratory distress [Unknown]
  - Groin pain [Unknown]
  - Insomnia [Unknown]
  - Ageusia [Unknown]
  - Anosmia [Unknown]
  - Cough [Unknown]
  - Prostatic specific antigen increased [Unknown]
  - Dyspnoea [Unknown]
  - Arthralgia [Unknown]
  - Back pain [Unknown]

NARRATIVE: CASE EVENT DATE: 202103
